FAERS Safety Report 10077079 (Version 1)
Quarter: 2014Q2

REPORT INFORMATION
  Report Type: Spontaneous
  Country: FR (occurrence: None)
  Receive Date: 20140410
  Receipt Date: 20140410
  Transmission Date: 20141212
  Serious: Yes (Hospitalization, Other)
  Sender: FDA-Public Use
  Company Number: FR-ALKEM-000549

PATIENT
  Age: 46 Year
  Sex: Male

DRUGS (3)
  1. MYCOPHENOLATE MOFETIL (MYCOPHENOLATE MOFETIL) [Suspect]
     Indication: IMMUNOSUPPRESSION
  2. PREDNISONE (PREDNISONE) [Concomitant]
  3. CYCLOSPORINE (CYCLOSPORINE) [Concomitant]

REACTIONS (4)
  - Diarrhoea [None]
  - Renal failure acute [None]
  - Pyrexia [None]
  - Haemodialysis [None]
